FAERS Safety Report 13853177 (Version 2)
Quarter: 2017Q3

REPORT INFORMATION
  Report Type: Spontaneous
  Country: US (occurrence: US)
  Receive Date: 20170809
  Receipt Date: 20170921
  Transmission Date: 20171127
  Serious: No
  Sender: FDA-Public Use
  Company Number: US-CELGENEUS-USA-20170800302

PATIENT
  Sex: Female
  Weight: 51.3 kg

DRUGS (1)
  1. OTEZLA [Suspect]
     Active Substance: APREMILAST
     Indication: PSORIASIS
     Dosage: 10-20-30 MG TITRATION
     Route: 048

REACTIONS (4)
  - Dyspepsia [Unknown]
  - Dizziness [Unknown]
  - Weight decreased [Unknown]
  - Diarrhoea [Unknown]
